FAERS Safety Report 12582870 (Version 1)
Quarter: 2016Q3

REPORT INFORMATION
  Report Type: Report from Study
  Country: MX (occurrence: MX)
  Receive Date: 20160722
  Receipt Date: 20160722
  Transmission Date: 20161109
  Serious: Yes (Other)
  Sender: FDA-Public Use
  Company Number: MX-ABBVIE-16K-107-1677602-00

PATIENT
  Age: 56 Year
  Sex: Male
  Weight: 64 kg

DRUGS (4)
  1. PENTASET [Concomitant]
     Route: 048
     Dates: start: 20160711
  2. PENTASET [Concomitant]
     Indication: COLITIS ULCERATIVE
     Route: 048
     Dates: start: 20140901, end: 20160711
  3. PENTASET [Concomitant]
     Dosage: AT NIGHT
     Route: 054
     Dates: start: 20160711
  4. HUMIRA [Suspect]
     Active Substance: ADALIMUMAB
     Indication: COLITIS ULCERATIVE
     Route: 058
     Dates: start: 20140716

REACTIONS (1)
  - Benign prostatic hyperplasia [Not Recovered/Not Resolved]

NARRATIVE: CASE EVENT DATE: 20160711
